FAERS Safety Report 13902514 (Version 1)
Quarter: 2017Q3

REPORT INFORMATION
  Report Type: Spontaneous
  Country: US (occurrence: US)
  Receive Date: 20170824
  Receipt Date: 20170824
  Transmission Date: 20171127
  Serious: No
  Sender: FDA-Public Use
  Company Number: US-ROCHE-1124372

PATIENT
  Sex: Female
  Weight: 79.45 kg

DRUGS (15)
  1. HERCEPTIN [Suspect]
     Active Substance: TRASTUZUMAB
     Indication: PRODUCT USED FOR UNKNOWN INDICATION
     Dosage: LOADING DOSE
     Route: 065
     Dates: start: 20001220
  2. QUINAMM [Concomitant]
     Active Substance: QUININE SULFATE
  3. HERCEPTIN [Suspect]
     Active Substance: TRASTUZUMAB
     Dosage: MAINTAINANCE DOSE
     Route: 065
  4. GLUTAMIC ACID [Concomitant]
     Active Substance: GLUTAMIC ACID
     Route: 065
  5. VITAMIN B6 [Concomitant]
     Active Substance: PYRIDOXINE HYDROCHLORIDE
     Route: 065
     Dates: start: 20001227
  6. EPO [Concomitant]
     Active Substance: ERYTHROPOIETIN
     Route: 065
  7. NAVELBINE [Concomitant]
     Active Substance: VINORELBINE TARTRATE
     Route: 065
     Dates: start: 20001227
  8. PRILOSEC [Concomitant]
     Active Substance: OMEPRAZOLE MAGNESIUM
     Dosage: 17/JAN/2001, 24/JAN/2001
     Route: 065
  9. GCSF OR GMCSF [Concomitant]
     Route: 065
  10. THALIDOMIDE [Concomitant]
     Active Substance: THALIDOMIDE
  11. LIPITOR [Concomitant]
     Active Substance: ATORVASTATIN CALCIUM
     Dosage: 17/JAN/2001, 24/JAN/2001
     Route: 065
  12. ZOLADEX [Concomitant]
     Active Substance: GOSERELIN ACETATE
     Route: 065
  13. PROSCAR [Concomitant]
     Active Substance: FINASTERIDE
     Route: 065
  14. COUMADINE [Concomitant]
     Active Substance: WARFARIN SODIUM
  15. EMCYT [Concomitant]
     Active Substance: ESTRAMUSTINE PHOSPHATE SODIUM
     Dosage: 03/JAN/2001, 10/JAN/2001, 17/JAN/2001, 24/JAN/2001
     Route: 065

REACTIONS (1)
  - Herpes zoster [Unknown]
